FAERS Safety Report 11569083 (Version 1)
Quarter: 2015Q3

REPORT INFORMATION
  Report Type: Spontaneous
  Country: US (occurrence: None)
  Receive Date: 20150928
  Receipt Date: 20150928
  Transmission Date: 20151125
  Serious: No
  Sender: FDA-Public Use
  Company Number: None

PATIENT
  Sex: Male

DRUGS (1)
  1. TETRABENAZINE. [Suspect]
     Active Substance: TETRABENAZINE
     Indication: CHOREA
     Route: 048
     Dates: start: 20150917

REACTIONS (1)
  - Therapy responder [None]
